FAERS Safety Report 8345242-8 (Version None)
Quarter: 2012Q2

REPORT INFORMATION
  Report Type: 
  Country: None (occurrence: None)
  Receive Date: 20120508
  Receipt Date: 20120501
  Transmission Date: 20120825
  Serious: Yes (Hospitalization)
  Sender: FDA-Public Use
  Company Number: NL-MEDIMMUNE-MEDI-0013697

PATIENT
  Sex: Male
  Weight: 7.64 kg

DRUGS (11)
  1. AEROSOL QUVAR [Concomitant]
  2. SYNAGIS [Suspect]
     Route: 030
     Dates: start: 20111004
  3. AMOXICILLIN [Concomitant]
  4. SYNAGIS [Suspect]
     Indication: BRONCHOPULMONARY DYSPLASIA
     Route: 030
     Dates: start: 20110906, end: 20110906
  5. URSOFLOXCAPS [Concomitant]
  6. ALFACALCIDOL [Concomitant]
  7. DOMPERIDONE MALEATE [Concomitant]
  8. ESOMEPRAZOLE SODIUM [Concomitant]
  9. VERNEVELEN IPRAXA [Concomitant]
  10. VERNEVELEN VENTOLIN [Concomitant]
  11. POTASSIUM CHLORIDE [Concomitant]

REACTIONS (2)
  - RESPIRATORY TRACT INFECTION [None]
  - DYSPNOEA [None]
